FAERS Safety Report 8547863-6 (Version None)
Quarter: 2012Q3

REPORT INFORMATION
  Report Type: 
  Country: None (occurrence: None)
  Receive Date: 20120727
  Receipt Date: 20110822
  Transmission Date: 20120928
  Serious: Yes (Other)
  Sender: FDA-Public Use
  Company Number: US-ASTRAZENECA-2011SE31103

PATIENT
  Age: 41 Year
  Sex: Female

DRUGS (6)
  1. LAMICTAL [Concomitant]
  2. SEROQUEL [Suspect]
     Indication: MOOD ALTERED
     Route: 048
  3. VALIUM [Concomitant]
     Indication: PANIC DISORDER
  4. SEROQUEL [Suspect]
     Indication: BIPOLAR DISORDER
     Route: 048
  5. TRAZODONE HCL [Concomitant]
     Indication: SLEEP DISORDER
  6. SEROQUEL [Suspect]
     Indication: PARANOIA
     Route: 048

REACTIONS (5)
  - SEDATION [None]
  - SOMNAMBULISM [None]
  - HYPERSOMNIA [None]
  - DRUG DOSE OMISSION [None]
  - HOSTILITY [None]
